FAERS Safety Report 25641333 (Version 1)
Quarter: 2025Q3

REPORT INFORMATION
  Report Type: Spontaneous
  Country: AU (occurrence: AU)
  Receive Date: 20250804
  Receipt Date: 20250804
  Transmission Date: 20251021
  Serious: Yes (Hospitalization, Other)
  Sender: MYLAN
  Company Number: AU-MYLANLABS-2025M1064429

PATIENT
  Age: 60 Year
  Sex: Female

DRUGS (3)
  1. DILANTIN [Suspect]
     Active Substance: PHENYTOIN
     Indication: Epilepsy
     Dosage: 600 MILLIGRAM, QD (FIRST REGIMEN AT 600 MG DAILY)
  2. DILANTIN [Suspect]
     Active Substance: PHENYTOIN
     Dosage: 400 MILLIGRAM, QD (SECOND REGIMEN AT 400 MG DAILY)
  3. DILANTIN [Suspect]
     Active Substance: PHENYTOIN
     Dosage: 600 MILLIGRAM, QD (THIRD REGIMEN AT 600 MG DAILY FOR EPILEPSY)

REACTIONS (8)
  - Cervical vertebral fracture [Recovering/Resolving]
  - Craniofacial fracture [Recovering/Resolving]
  - Generalised tonic-clonic seizure [Unknown]
  - Hepatic fibrosis [Unknown]
  - Hepatic steatosis [Unknown]
  - Decreased appetite [Unknown]
  - Fatigue [Unknown]
  - Intentional product use issue [Unknown]

NARRATIVE: CASE EVENT DATE: 20220327
